FAERS Safety Report 8083098 (Version 6)
Quarter: 2012Q4

REPORT INFORMATION
  Report Type: 
  Country: DE (occurrence: JP)
  Receive Date: 20110809
  Receipt Date: 20121205
  Transmission Date: 20130627
  Serious: Yes (Death, Hospitalization, Other)
  Sender: FDA-Public Use
  Company Number: JP-SPECTRUM PHARMACEUTICALS, INC.-11-Z-JP-00142

PATIENT

DRUGS (6)
  1. ZEVALIN [Suspect]
     Indication: LYMPHOMA
     Dosage: 1 DF, single
     Route: 042
     Dates: start: 20110222, end: 20110222
  2. ZEVALIN [Suspect]
     Dosage: 1 DF, single
     Route: 042
     Dates: start: 20110215, end: 20110215
  3. RITUXIMAB [Suspect]
     Indication: LYMPHOMA
     Dosage: UNK, single
     Route: 041
     Dates: start: 20110222, end: 20110222
  4. RITUXIMAB [Suspect]
     Dosage: UNK, single
     Route: 041
     Dates: start: 20110215, end: 20110215
  5. LOXONIN                            /00890701/ [Concomitant]
     Indication: PRODUCT USED FOR UNKNOWN INDICATION
     Dosage: UNK
     Route: 065
     Dates: start: 20110215, end: 20110222
  6. POLARAMINE                         /00043702/ [Concomitant]
     Indication: PRODUCT USED FOR UNKNOWN INDICATION
     Dosage: UNK
     Route: 065
     Dates: start: 20110215, end: 20110222

REACTIONS (10)
  - Hepatic failure [Fatal]
  - Jaundice [Unknown]
  - Hepatic enzyme increased [Recovering/Resolving]
  - Renal impairment [Not Recovered/Not Resolved]
  - Hypoalbuminaemia [Not Recovered/Not Resolved]
  - Fungal infection [Not Recovered/Not Resolved]
  - Neutropenia [Unknown]
  - Platelet count decreased [Unknown]
  - White blood cell count decreased [Unknown]
  - Haemoglobin decreased [Unknown]
